FAERS Safety Report 8936971 (Version 3)
Quarter: 2014Q1

REPORT INFORMATION
  Report Type: Report from Study
  Country: GB (occurrence: GB)
  Receive Date: 20121130
  Receipt Date: 20140325
  Transmission Date: 20141002
  Serious: Yes (Hospitalization, Other)
  Sender: FDA-Public Use
  Company Number: GB-ROCHE-1162569

PATIENT
  Age: 83 Year
  Sex: Female

DRUGS (7)
  1. RANIBIZUMAB [Suspect]
     Indication: PRODUCT USED FOR UNKNOWN INDICATION
     Route: 050
     Dates: start: 20100610, end: 20131121
  2. RANIBIZUMAB [Suspect]
     Route: 050
     Dates: start: 20111011
  3. SIMVASTATIN [Concomitant]
  4. CLOPIDOGREL [Concomitant]
  5. PERINDOPRIL [Concomitant]
  6. BENDROFLUMETHIAZIDE [Concomitant]
  7. METFORMIN [Concomitant]

REACTIONS (4)
  - Atrioventricular block [Recovered/Resolved]
  - Cerebrovascular accident [Recovering/Resolving]
  - Vascular calcification [Recovered/Resolved]
  - Ischaemia [Unknown]
